FAERS Safety Report 7522044-3 (Version None)
Quarter: 2011Q2

REPORT INFORMATION
  Report Type: 
  Country: None (occurrence: None)
  Receive Date: 20110603
  Receipt Date: 20110523
  Transmission Date: 20111010
  Serious: Yes (Other)
  Sender: FDA-Public Use
  Company Number: US-JNJFOC-20110511534

PATIENT
  Sex: Female
  Weight: 53.98 kg

DRUGS (6)
  1. VISTARIL [Concomitant]
     Indication: ANTIALLERGIC THERAPY
     Route: 048
     Dates: start: 19940101
  2. NEXIUM [Concomitant]
     Indication: GASTROOESOPHAGEAL REFLUX DISEASE
     Route: 048
     Dates: start: 19860101
  3. ELAVIL [Concomitant]
     Indication: CYSTITIS INTERSTITIAL
     Route: 048
     Dates: start: 19850101
  4. PREMARIN [Concomitant]
     Indication: HORMONE REPLACEMENT THERAPY
     Route: 048
     Dates: start: 19730101
  5. PROSED DS [Concomitant]
     Indication: CYSTITIS INTERSTITIAL
     Route: 048
     Dates: start: 19900101
  6. ELMIRON [Suspect]
     Indication: CYSTITIS INTERSTITIAL
     Route: 048
     Dates: start: 19980101

REACTIONS (3)
  - HERPES ZOSTER [None]
  - INCORRECT DOSE ADMINISTERED [None]
  - THERAPEUTIC RESPONSE DELAYED [None]
